FAERS Safety Report 20344039 (Version 1)
Quarter: 2022Q1

REPORT INFORMATION
  Report Type: Spontaneous
  Country: US (occurrence: None)
  Receive Date: 20220118
  Receipt Date: 20220118
  Transmission Date: 20220423
  Serious: Yes (Hospitalization, Other)
  Sender: FDA-Public Use
  Company Number: 2022A018019

PATIENT
  Age: 56 Year
  Sex: Female
  Weight: 59.9 kg

DRUGS (1)
  1. SYMBICORT [Suspect]
     Active Substance: BUDESONIDE\FORMOTEROL FUMARATE DIHYDRATE
     Indication: Asthma
     Dosage: 160MCG/4.5MCG VIA INHALATION, 2 INHALATIONS TWICE DAILY
     Route: 055

REACTIONS (9)
  - Lung neoplasm malignant [Unknown]
  - Glaucoma [Unknown]
  - Bronchitis [Unknown]
  - Stress [Unknown]
  - Dry eye [Unknown]
  - Vitreous floaters [Unknown]
  - Vision blurred [Unknown]
  - Pneumonia [Unknown]
  - Wheezing [Unknown]

NARRATIVE: CASE EVENT DATE: 20170101
